FAERS Safety Report 6736273-X (Version None)
Quarter: 2010Q2

REPORT INFORMATION
  Report Type: 
  Country: None (occurrence: None)
  Receive Date: 20100521
  Receipt Date: 20100517
  Transmission Date: 20101027
  Serious: Yes (Death)
  Sender: FDA-Public Use
  Company Number: DE-CEPHALON-2010002867

PATIENT
  Age: 79 Year
  Sex: Male
  Weight: 71 kg

DRUGS (5)
  1. TREANDA [Suspect]
     Indication: CHRONIC LYMPHOCYTIC LEUKAEMIA
     Dates: start: 20090101
  2. RITUXIMAB [Suspect]
     Indication: CHRONIC LYMPHOCYTIC LEUKAEMIA
     Dates: start: 20090930, end: 20091102
  3. SPIRO COMP [Concomitant]
     Indication: OEDEMA PERIPHERAL
     Dates: start: 20091109
  4. LISINOPRIL COMP [Concomitant]
     Indication: HYPERTENSION
  5. AMOXICILLIN [Concomitant]
     Indication: INFECTION
     Dates: start: 20091109

REACTIONS (4)
  - BRONCHOPNEUMONIA [None]
  - DEEP VEIN THROMBOSIS [None]
  - PULMONARY EMBOLISM [None]
  - SEPSIS [None]
